FAERS Safety Report 20427316 (Version 1)
Quarter: 2022Q1

REPORT INFORMATION
  Report Type: Spontaneous
  Country: FR (occurrence: FR)
  Receive Date: 20220204
  Receipt Date: 20220204
  Transmission Date: 20220423
  Serious: Yes (Hospitalization, Other)
  Sender: FDA-Public Use
  Company Number: FR-AFSSAPS-RS20220269

PATIENT
  Age: 22 Year
  Sex: Female
  Weight: 69 kg

DRUGS (1)
  1. NAPROXEN [Suspect]
     Active Substance: NAPROXEN
     Indication: Antiinflammatory therapy
     Dosage: 1 DOSAGE FORM(1 TABLET AT 8 P.M.)
     Route: 048
     Dates: start: 20220115, end: 20220115

REACTIONS (1)
  - Anaphylactic shock [Recovered/Resolved]

NARRATIVE: CASE EVENT DATE: 20220115
